FAERS Safety Report 9702871 (Version 6)
Quarter: 2014Q2

REPORT INFORMATION
  Report Type: Report from Study
  Country: US (occurrence: US)
  Receive Date: 20131121
  Receipt Date: 20140415
  Transmission Date: 20141212
  Serious: Yes (Hospitalization)
  Sender: FDA-Public Use
  Company Number: US-ROCHE-1301449

PATIENT
  Age: 64 Year
  Sex: Female
  Weight: 110.9 kg

DRUGS (5)
  1. VEMURAFENIB [Suspect]
     Indication: MALIGNANT MELANOMA
     Route: 048
     Dates: start: 20131022, end: 20131102
  2. BLINDED COBIMETINIB [Suspect]
     Indication: MALIGNANT MELANOMA
     Route: 048
     Dates: start: 20131022, end: 20131102
  3. NEXIUM [Concomitant]
     Indication: PROPHYLAXIS
     Route: 048
  4. TRIAMTERENE/HYDROCHLOROTHIAZIDE [Concomitant]
     Indication: HYPERTENSION
     Route: 048
  5. SOLU-MEDROL [Concomitant]
     Indication: RASH
     Route: 042
     Dates: start: 20131104, end: 20131104

REACTIONS (1)
  - Dehydration [Recovered/Resolved]
